FAERS Safety Report 5469009-3 (Version None)
Quarter: 2007Q3

REPORT INFORMATION
  Report Type: 
  Country: None (occurrence: None)
  Receive Date: 20070820
  Receipt Date: 20070619
  Transmission Date: 20080115
  Serious: No
  Sender: FDA-Public Use
  Company Number: WAES 0706USA03268

PATIENT
  Age: 69 Year
  Sex: Female
  Weight: 77.1115 kg

DRUGS (3)
  1. JANUVIA [Suspect]
     Indication: TYPE 2 DIABETES MELLITUS
     Dosage: 100 MG/DAILY/PO
     Route: 048
     Dates: start: 20070617, end: 20070618
  2. ALTACE [Concomitant]
  3. TRICOR [Concomitant]

REACTIONS (4)
  - BLOOD GLUCOSE INCREASED [None]
  - CHEST PAIN [None]
  - DIZZINESS [None]
  - DYSPNOEA [None]
